FAERS Safety Report 15283433 (Version 1)
Quarter: 2018Q3

REPORT INFORMATION
  Report Type: Spontaneous
  Country: US (occurrence: US)
  Receive Date: 20180816
  Receipt Date: 20180816
  Transmission Date: 20181010
  Serious: No
  Sender: FDA-Public Use
  Company Number: US-PFIZER INC-2018114944

PATIENT
  Age: 13 Year
  Sex: Male

DRUGS (3)
  1. GENOTROPIN [Suspect]
     Active Substance: SOMATROPIN
     Dosage: 1.6MG AND 1.4 MG, ALTERNATE DAY (1.6 MG ALT WITH 1.4 MG DAILY)
     Dates: start: 20171019
  2. GENOTROPIN [Suspect]
     Active Substance: SOMATROPIN
     Dosage: 1.6MG AND 1.4 MG, ALTERNATE DAY (1.6 MG ALT WITH 1.4 MG DAILY)
     Dates: start: 20171019
  3. GENOTROPIN [Suspect]
     Active Substance: SOMATROPIN
     Dosage: 1.5 MG, DAILY (TOTAL DOSE OF 0.32 MG/KG/WEEK)

REACTIONS (2)
  - Drug prescribing error [Unknown]
  - Growing pains [Unknown]

NARRATIVE: CASE EVENT DATE: 20180502
